FAERS Safety Report 19103830 (Version 1)
Quarter: 2021Q2

REPORT INFORMATION
  Report Type: Report from Study
  Country: IT (occurrence: IT)
  Receive Date: 20210407
  Receipt Date: 20210407
  Transmission Date: 20210717
  Serious: Yes (Other)
  Sender: FDA-Public Use
  Company Number: IT-TEVA-2021-IT-1873096

PATIENT
  Age: 67 Year
  Sex: Female

DRUGS (4)
  1. PACLITAXEL. [Concomitant]
     Active Substance: PACLITAXEL
     Indication: BREAST NEOPLASM
     Dosage: 130MILLIGRAM
     Route: 042
     Dates: start: 20201008, end: 20201229
  2. OMEPRAZOLE. [Concomitant]
     Active Substance: OMEPRAZOLE
     Dosage: 20MILLIGRAM
     Route: 048
  3. PREDNISOLONE. [Concomitant]
     Active Substance: PREDNISOLONE
     Dosage: 25MILLIGRAM
     Route: 048
     Dates: start: 20201228, end: 20201228
  4. CARBOPLATIN. [Suspect]
     Active Substance: CARBOPLATIN
     Indication: BREAST NEOPLASM
     Dosage: 200MILLIGRAM
     Route: 042
     Dates: start: 20201008, end: 20201229

REACTIONS (4)
  - Paraesthesia [Recovered/Resolved]
  - Erythema [Recovered/Resolved]
  - Sense of oppression [Recovered/Resolved]
  - Hypersensitivity [Recovered/Resolved]

NARRATIVE: CASE EVENT DATE: 20201229
